FAERS Safety Report 10477818 (Version 2)
Quarter: 2014Q3

REPORT INFORMATION
  Report Type: Spontaneous
  Country: ZA (occurrence: ZA)
  Receive Date: 20140926
  Receipt Date: 20140926
  Transmission Date: 20150326
  Serious: Yes (Hospitalization, Other)
  Sender: FDA-Public Use
  Company Number: ZA-BAYER-2014-129164

PATIENT
  Age: 48 Year
  Sex: Female

DRUGS (1)
  1. MIRENA [Suspect]
     Active Substance: LEVONORGESTREL
     Indication: ENDOMETRIOSIS
     Dosage: 20 MCG/24HR, CONT
     Route: 015
     Dates: start: 201407, end: 2014

REACTIONS (8)
  - Abdominal adhesions [None]
  - Pelvic inflammatory disease [None]
  - Postoperative wound infection [None]
  - Abdominal pain lower [None]
  - Pyrexia [None]
  - Adnexa uteri cyst [None]
  - Off label use [None]
  - Pelvic abscess [None]

NARRATIVE: CASE EVENT DATE: 2014
